FAERS Safety Report 21497938 (Version 4)
Quarter: 2022Q4

REPORT INFORMATION
  Report Type: Spontaneous
  Country: US (occurrence: US)
  Receive Date: 20221024
  Receipt Date: 20221116
  Transmission Date: 20230113
  Serious: No
  Sender: FDA-Public Use
  Company Number: US-NOVARTISTESTPH-NVSC2022US238137

PATIENT
  Sex: Female

DRUGS (1)
  1. ESTRADIOL [Suspect]
     Active Substance: ESTRADIOL
     Indication: Product used for unknown indication
     Dosage: 0.075 MG, Q2W
     Route: 062

REACTIONS (4)
  - Application site vesicles [Unknown]
  - Application site irritation [Unknown]
  - Product adhesion issue [Unknown]
  - Drug dose omission by device [Unknown]
